FAERS Safety Report 5234762-0 (Version None)
Quarter: 2007Q1

REPORT INFORMATION
  Report Type: 
  Country: None (occurrence: None)
  Receive Date: 20070209
  Receipt Date: 20070130
  Transmission Date: 20070707
  Serious: Yes (Other)
  Sender: FDA-Public Use
  Company Number: US-ELI_LILLY_AND_COMPANY-US200701006322

PATIENT
  Age: 64 Year
  Sex: Female

DRUGS (5)
  1. GEMZAR [Suspect]
     Indication: NON-SMALL CELL LUNG CANCER
     Dosage: UNK, OTHER
     Route: 042
     Dates: start: 20061001
  2. CARBOPLATIN [Concomitant]
     Indication: NON-SMALL CELL LUNG CANCER
     Dates: start: 20061001
  3. ANTIEMETICS AND ANTINAUSEANTS [Concomitant]
     Indication: NAUSEA
  4. PROCRIT [Concomitant]
     Indication: ANAEMIA
     Dates: start: 20060101
  5. GLUCOSAMINE [Concomitant]
     Indication: ARTHRALGIA

REACTIONS (6)
  - ANAEMIA [None]
  - ARTHRALGIA [None]
  - DYSPNOEA [None]
  - PERICARDIAL EFFUSION [None]
  - PLEURITIC PAIN [None]
  - VOMITING [None]
